FAERS Safety Report 13705889 (Version 2)
Quarter: 2017Q3

REPORT INFORMATION
  Report Type: Spontaneous
  Country: US (occurrence: US)
  Receive Date: 20170630
  Receipt Date: 20170814
  Transmission Date: 20171127
  Serious: Yes (Hospitalization)
  Sender: FDA-Public Use
  Company Number: US-ASTELLAS-2017US025266

PATIENT
  Age: 80 Year
  Sex: Male

DRUGS (1)
  1. XTANDI [Suspect]
     Active Substance: ENZALUTAMIDE
     Indication: PROSTATE CANCER
     Route: 048
     Dates: start: 20161124, end: 20170808

REACTIONS (3)
  - Pleural effusion [Unknown]
  - Drug ineffective [Unknown]
  - Aspiration pleural cavity [Unknown]

NARRATIVE: CASE EVENT DATE: 20170622
